FAERS Safety Report 5274416-8 (Version None)
Quarter: 2007Q1

REPORT INFORMATION
  Report Type: 
  Country: None (occurrence: None)
  Receive Date: 20070323
  Receipt Date: 20070306
  Transmission Date: 20070707
  Serious: Yes (Death)
  Sender: FDA-Public Use
  Company Number: JP-PFIZER INC-2007012686

PATIENT
  Sex: Male

DRUGS (13)
  1. IRINOTECAN HCL [Suspect]
     Indication: NEOPLASM OF THYMUS
     Route: 042
     Dates: start: 20051102, end: 20070111
  2. KYTRIL [Concomitant]
     Indication: PROPHYLAXIS OF NAUSEA AND VOMITING
     Route: 042
     Dates: start: 20061019, end: 20070111
  3. DECADRON [Concomitant]
     Indication: PROPHYLAXIS OF NAUSEA AND VOMITING
     Route: 042
     Dates: start: 20060703, end: 20070111
  4. PRIMPERAN INJ [Concomitant]
     Indication: PROPHYLAXIS OF NAUSEA AND VOMITING
     Route: 042
     Dates: start: 20060703, end: 20070111
  5. SODIUM BICARBONATE [Concomitant]
     Route: 048
     Dates: start: 20060704, end: 20070116
  6. MAGNESIUM OXIDE [Concomitant]
     Route: 048
     Dates: start: 20060704, end: 20070116
  7. ZOFRAN [Concomitant]
     Route: 048
     Dates: start: 20060704, end: 20070116
  8. VITAMEDIN INTRAVENOUS [Concomitant]
     Route: 042
     Dates: start: 20060713, end: 20070111
  9. SEROTONE [Concomitant]
     Route: 042
     Dates: start: 20060817, end: 20060907
  10. PARIET [Concomitant]
     Route: 048
     Dates: start: 20060703, end: 20070201
  11. GASMOTIN [Concomitant]
     Route: 048
     Dates: start: 20060703, end: 20070201
  12. CISPLATIN [Concomitant]
     Dates: start: 20051102, end: 20060327
  13. CARBOPLATIN [Concomitant]
     Route: 042
     Dates: start: 20060703, end: 20061019

REACTIONS (7)
  - ANAEMIA [None]
  - DIARRHOEA [None]
  - DISSEMINATED INTRAVASCULAR COAGULATION [None]
  - HEPATIC FUNCTION ABNORMAL [None]
  - LEUKOPENIA [None]
  - RENAL FAILURE [None]
  - THROMBOCYTOPENIA [None]
